FAERS Safety Report 18992395 (Version 1)
Quarter: 2021Q1

REPORT INFORMATION
  Report Type: Spontaneous
  Country: US (occurrence: US)
  Receive Date: 20210310
  Receipt Date: 20210310
  Transmission Date: 20210420
  Serious: Yes (Disabling, Other)
  Sender: FDA-Public Use
  Company Number: None

PATIENT
  Age: 44 Year
  Sex: Female
  Weight: 58.5 kg

DRUGS (22)
  1. OXYCODONE?ACETAMINOPHEN 5?325 MG, GENERIC FOR: PERCOCET 5?325 MG [Suspect]
     Active Substance: ACETAMINOPHEN\OXYCODONE HYDROCHLORIDE
     Indication: MYELOPATHY
     Route: 048
     Dates: start: 20210114, end: 20210208
  2. METOCLOP4AMIDE [Concomitant]
  3. BONE STIMULATOR AND ASPEN NECK BRACE [Concomitant]
  4. WOMAN^S DAILY MULTI?VITAMIN [Concomitant]
  5. COD LIVER [Concomitant]
     Active Substance: COD LIVER OIL
  6. DESVENLAFAXINE. [Concomitant]
     Active Substance: DESVENLAFAXINE
  7. BUSPARIONE [Concomitant]
  8. PROBIOTICS [Concomitant]
     Active Substance: PROBIOTICS NOS
  9. OXYCODONE?ACETAMINOPHEN 5?325 MG, GENERIC FOR: PERCOCET 5?325 MG [Suspect]
     Active Substance: ACETAMINOPHEN\OXYCODONE HYDROCHLORIDE
     Indication: RADICULOPATHY
     Route: 048
     Dates: start: 20210114, end: 20210208
  10. RIZATRIPTAN. [Concomitant]
     Active Substance: RIZATRIPTAN
  11. ZINC. [Concomitant]
     Active Substance: ZINC
  12. MAGNESIUM CITRATE. [Concomitant]
     Active Substance: MAGNESIUM CITRATE
  13. OXYCODONE?ACETAMINOPHEN 5?325 MG, GENERIC FOR: PERCOCET 5?325 MG [Suspect]
     Active Substance: ACETAMINOPHEN\OXYCODONE HYDROCHLORIDE
     Indication: SPINAL STENOSIS
     Route: 048
     Dates: start: 20210114, end: 20210208
  14. CALCIUM TABLETS [Concomitant]
  15. VITAMIN D3 [Concomitant]
     Active Substance: CHOLECALCIFEROL
  16. B COMPLEX WITH ELECTROLYTES [Concomitant]
  17. OXYCODONE?ACETAMINOPHEN 5?325 MG GENERIC FOR PERCOCET [Suspect]
     Active Substance: ACETAMINOPHEN\OXYCODONE HYDROCHLORIDE
     Indication: PAIN
     Dosage: ?          QUANTITY:40 TABLET(S);OTHER FREQUENCY:EVERY 4 TO 6 HOURS;?
     Route: 048
  18. REXULTI [Concomitant]
     Active Substance: BREXPIPRAZOLE
  19. LOSARTAN. [Concomitant]
     Active Substance: LOSARTAN
  20. OXYCODONE?ACETAMINOPHEN 5?325 MG GENERIC FOR PERCOCET [Suspect]
     Active Substance: ACETAMINOPHEN\OXYCODONE HYDROCHLORIDE
     Indication: SPINAL CORD COMPRESSION
     Dosage: ?          QUANTITY:40 TABLET(S);OTHER FREQUENCY:EVERY 4 TO 6 HOURS;?
     Route: 048
  21. ADDERALL [Concomitant]
     Active Substance: AMPHETAMINE ASPARTATE\AMPHETAMINE SULFATE\DEXTROAMPHETAMINE SACCHARATE\DEXTROAMPHETAMINE SULFATE
  22. MELATONIN [Concomitant]
     Active Substance: MELATONIN

REACTIONS (2)
  - Drug ineffective [None]
  - Drug withdrawal syndrome [None]

NARRATIVE: CASE EVENT DATE: 20210114
